FAERS Safety Report 19676595 (Version 1)
Quarter: 2021Q3

REPORT INFORMATION
  Report Type: Report from Study
  Country: US (occurrence: US)
  Receive Date: 20210809
  Receipt Date: 20210809
  Transmission Date: 20211014
  Serious: Yes (Death)
  Sender: FDA-Public Use
  Company Number: US-PFIZER INC-2021269946

PATIENT

DRUGS (5)
  1. IFOSFAMIDE. [Suspect]
     Active Substance: IFOSFAMIDE
     Indication: HODGKIN^S DISEASE
     Dosage: 5 G/M2, ON DAY 2, 21?DAY CYCLE
     Route: 042
  2. MESNA. [Suspect]
     Active Substance: MESNA
     Indication: HODGKIN^S DISEASE
     Dosage: 5 G/M2, OVER 24 H ON DAY 2, 21?DAY CYCLE
     Route: 042
  3. ETOPOSIDE. [Suspect]
     Active Substance: ETOPOSIDE
     Indication: HODGKIN^S DISEASE
     Dosage: 100 MG/M2, ON DAYS 1?3; 21?DAY CYCLE
     Route: 042
  4. BRENTUXIMAB VEDOTIN RECOMBINANT [Suspect]
     Active Substance: BRENTUXIMAB VEDOTIN
     Indication: HODGKIN^S DISEASE
     Dosage: EITHER 1.2 OR 1.5 MG/KG, CYCLIC ON DAYS 1 AND 8
     Route: 042
  5. CARBOPLATIN. [Suspect]
     Active Substance: CARBOPLATIN
     Indication: HODGKIN^S DISEASE
     Dosage: AUC 5 ON DAY 2, 21?DAY CYCLE
     Route: 042

REACTIONS (1)
  - Multiple organ dysfunction syndrome [Fatal]
